FAERS Safety Report 6880018-X (Version None)
Quarter: 2010Q3

REPORT INFORMATION
  Report Type: 
  Country: None (occurrence: None)
  Receive Date: 20100728
  Receipt Date: 20100723
  Transmission Date: 20110219
  Serious: Yes (Life-Threatening, Hospitalization)
  Sender: FDA-Public Use
  Company Number: PHHY2010DE48839

PATIENT
  Age: 13 Year
  Sex: Male
  Weight: 47 kg

DRUGS (3)
  1. OXCARBAZEPINE [Suspect]
     Indication: EPILEPSY
     Dosage: 900 MG/DAY
     Route: 048
     Dates: start: 20100210, end: 20100212
  2. VALPROATE SODIUM [Concomitant]
     Indication: EPILEPSY
     Dosage: 2000 MG/ DAY
     Route: 048
  3. KEPPRA [Concomitant]
     Indication: EPILEPSY
     Dosage: 2000 MG/DAY
     Route: 048
     Dates: end: 20100213

REACTIONS (3)
  - AGITATION [None]
  - DYSARTHRIA [None]
  - SOMNOLENCE [None]
